FAERS Safety Report 23841679 (Version 1)
Quarter: 2024Q2

REPORT INFORMATION
  Report Type: Report from Study
  Country: ES (occurrence: ES)
  Receive Date: 20240510
  Receipt Date: 20240510
  Transmission Date: 20240716
  Serious: Yes (Other)
  Sender: FDA-Public Use
  Company Number: ES-JAZZ PHARMACEUTICALS-2024-ES-006816

PATIENT

DRUGS (1)
  1. EPIDIOLEX [Suspect]
     Active Substance: CANNABIDIOL
     Indication: Product used for unknown indication
     Dosage: 0.8
     Dates: start: 202211

REACTIONS (8)
  - Choking [Unknown]
  - Epilepsy [Not Recovered/Not Resolved]
  - Aggression [Unknown]
  - Coordination abnormal [Unknown]
  - Behaviour disorder [Unknown]
  - Somnolence [Unknown]
  - Drug interaction [Unknown]
  - Balance disorder [Unknown]
